FAERS Safety Report 9435530 (Version 2)
Quarter: 2013Q3

REPORT INFORMATION
  Report Type: Spontaneous
  Country: US (occurrence: None)
  Receive Date: 20130730
  Receipt Date: 20130805
  Transmission Date: 20140515
  Serious: Yes (Other)
  Sender: FDA-Public Use
  Company Number: 130235

PATIENT
  Age: 49 Year
  Sex: Male
  Weight: 85.28 kg

DRUGS (5)
  1. SUPREP BOWEL PREP KIT [Suspect]
     Indication: COLONOSCOPY
     Dosage: 1 X 6 OZ. BOTTLE
     Route: 048
     Dates: start: 20130722
  2. SUBOXONE [Concomitant]
  3. CELBREX 200MG [Concomitant]
  4. ALBUTEROL [Concomitant]
  5. COMBIVENT [Concomitant]

REACTIONS (4)
  - Convulsion [None]
  - Pneumonia [None]
  - Rocky mountain spotted fever [None]
  - Refusal of treatment by patient [None]
